FAERS Safety Report 8506951-0 (Version None)
Quarter: 2012Q3

REPORT INFORMATION
  Report Type: 
  Country: None (occurrence: None)
  Receive Date: 20120712
  Receipt Date: 20120703
  Transmission Date: 20120928
  Serious: Yes (Other)
  Sender: FDA-Public Use
  Company Number: FI-ELI_LILLY_AND_COMPANY-FI201207001254

PATIENT
  Sex: Female

DRUGS (8)
  1. CALCIUM CARBONATE [Concomitant]
     Indication: MEDICAL DIET
     Dosage: UNK
  2. OMEGA [Concomitant]
     Dosage: UNK
  3. FORTEO [Suspect]
     Indication: OSTEOPOROSIS
     Dosage: 20 UG, QD
     Route: 058
     Dates: start: 20110201
  4. ACETAMINOPHEN [Concomitant]
     Indication: PAIN
     Dosage: UNK
  5. GINGER [Concomitant]
     Indication: MUSCLE SPASMS
     Dosage: UNK
  6. MAGNESIUM SULFATE [Concomitant]
     Dosage: UNK
  7. INSULIN [Concomitant]
     Dosage: UNK
  8. LEVOLAC [Concomitant]
     Dosage: UNK

REACTIONS (5)
  - PLACENTAL NEOPLASM [None]
  - ABDOMINAL PAIN UPPER [None]
  - ASTHENIA [None]
  - MUSCULAR WEAKNESS [None]
  - PAIN IN EXTREMITY [None]
